FAERS Safety Report 7444798-7 (Version None)
Quarter: 2011Q2

REPORT INFORMATION
  Report Type: 
  Country: None (occurrence: None)
  Receive Date: 20110427
  Receipt Date: 20110427
  Transmission Date: 20111010
  Serious: No
  Sender: FDA-Public Use
  Company Number: None

PATIENT
  Age: 63 Year
  Sex: Male
  Weight: 83 kg

DRUGS (1)
  1. LEVOFLOXACIN [Suspect]
     Dosage: 750 MG EVERY DAY PO
     Route: 048
     Dates: start: 20100928, end: 20101004

REACTIONS (1)
  - CONVULSION [None]
